FAERS Safety Report 9147098 (Version 1)
Quarter: 2013Q1

REPORT INFORMATION
  Report Type: Spontaneous
  Country: US (occurrence: None)
  Receive Date: 20130212
  Receipt Date: 20130212
  Transmission Date: 20140127
  Serious: Yes (Death)
  Sender: FDA-Public Use
  Company Number: CIP-2013-00020

PATIENT
  Sex: 0

DRUGS (5)
  1. CARBOPLATIN [Suspect]
     Indication: NON-SMALL CELL LUNG CANCER
  2. BEVACIZUMAB [Suspect]
     Indication: NON-SMALL CELL LUNG CANCER
  3. IXABEPILONE [Suspect]
     Indication: NON-SMALL CELL LUNG CANCER
  4. DEXAMETHASONE (DEXAMETHASONE) [Concomitant]
  5. ANTI-EMETIC (ANTIEMETICS AND ANTINAUSEANTS) [Concomitant]

REACTIONS (1)
  - Haemoptysis [None]
